FAERS Safety Report 20076861 (Version 1)
Quarter: 2021Q4

REPORT INFORMATION
  Report Type: Spontaneous
  Country: US (occurrence: None)
  Receive Date: 20211115
  Receipt Date: 20211115
  Transmission Date: 20220303
  Serious: No
  Sender: FDA-Public Use
  Company Number: None

PATIENT
  Sex: Female

DRUGS (1)
  1. HUMIRA [Suspect]
     Active Substance: ADALIMUMAB
     Indication: Rheumatoid arthritis
     Dosage: OTHER QUANTITY : 40MG/0.4ML ;?FREQUENCY : WEEKLY;?
     Route: 030
     Dates: start: 202008

REACTIONS (3)
  - Condition aggravated [None]
  - Fibromyalgia [None]
  - Therapy non-responder [None]
